FAERS Safety Report 7179618-1 (Version None)
Quarter: 2010Q4

REPORT INFORMATION
  Report Type: 
  Country: None (occurrence: None)
  Receive Date: 20101209
  Receipt Date: 20101207
  Transmission Date: 20110411
  Serious: Yes (Hospitalization)
  Sender: FDA-Public Use
  Company Number: SP03327

PATIENT
  Age: 58 Year
  Sex: Female

DRUGS (2)
  1. OSMOPREP [Suspect]
     Indication: BOWEL PREPARATION
     Dosage: (SPLIT DOSE REGIMEN), ORAL
     Route: 048
     Dates: start: 20101123, end: 20101124
  2. OSMOPREP [Suspect]
     Indication: COLONOSCOPY
     Dosage: (SPLIT DOSE REGIMEN), ORAL
     Route: 048
     Dates: start: 20101123, end: 20101124

REACTIONS (4)
  - COLITIS ISCHAEMIC [None]
  - INTESTINAL ISCHAEMIA [None]
  - POLYP [None]
  - POST PROCEDURAL COMPLICATION [None]
